FAERS Safety Report 9904144 (Version 2)
Quarter: 2014Q1

REPORT INFORMATION
  Report Type: Spontaneous
  Country: US (occurrence: US)
  Receive Date: 20140218
  Receipt Date: 20140310
  Transmission Date: 20141002
  Serious: No
  Sender: FDA-Public Use
  Company Number: US-BIOGENIDEC-2014BI013549

PATIENT
  Age: 56 Year
  Sex: Female
  Weight: 97 kg

DRUGS (11)
  1. TECFIDERA [Suspect]
     Indication: MULTIPLE SCLEROSIS
     Route: 048
     Dates: start: 20140114, end: 20140120
  2. TECFIDERA [Suspect]
     Indication: MULTIPLE SCLEROSIS
     Route: 048
     Dates: start: 20140121
  3. LANSOPRAZOLE [Concomitant]
  4. DIOVAN [Concomitant]
  5. ONDANSETRON [Concomitant]
  6. JANUMET [Concomitant]
  7. ATORVASTATIN [Concomitant]
  8. PAROXETINE [Concomitant]
  9. TOPROL XL [Concomitant]
  10. OXCARBAZEPINE [Concomitant]
  11. FLUTICASONE [Concomitant]

REACTIONS (4)
  - Flatulence [Not Recovered/Not Resolved]
  - Nausea [Not Recovered/Not Resolved]
  - Flushing [Not Recovered/Not Resolved]
  - Abdominal pain upper [Not Recovered/Not Resolved]
